FAERS Safety Report 7441553-9 (Version None)
Quarter: 2011Q2

REPORT INFORMATION
  Report Type: 
  Country: None (occurrence: None)
  Receive Date: 20110420
  Receipt Date: 20100406
  Transmission Date: 20111010
  Serious: Yes (Hospitalization, Other)
  Sender: FDA-Public Use
  Company Number: 2010SP020085

PATIENT
  Age: 41 Year
  Sex: Female
  Weight: 58.0604 kg

DRUGS (12)
  1. BIOTIN [Concomitant]
  2. NUVARING [Suspect]
     Indication: MENSTRUAL CYCLE MANAGEMENT
     Dosage: ; VAG
     Route: 067
     Dates: start: 20070101, end: 20080401
  3. NUVARING [Suspect]
     Indication: CONTRACEPTION
     Dosage: ; VAG
     Route: 067
     Dates: start: 20070101, end: 20080401
  4. ZOVIRAX [Concomitant]
  5. COUMADIN [Concomitant]
     Indication: ANTICOAGULANT THERAPY
  6. CENTRUM CARDIO [Concomitant]
  7. FISH OIL [Concomitant]
  8. ACIDOPHILUS [Concomitant]
  9. ATENOLOL [Concomitant]
  10. VITAMIN C [Concomitant]
  11. CEPHALEXIN [Concomitant]
  12. NAPHCON [Concomitant]

REACTIONS (18)
  - EMOTIONAL DISTRESS [None]
  - LUNG NEOPLASM [None]
  - ACQUIRED DIAPHRAGMATIC EVENTRATION [None]
  - HYPERDYNAMIC LEFT VENTRICLE [None]
  - MUSCULOSKELETAL CHEST PAIN [None]
  - PULMONARY EMBOLISM [None]
  - ASPIRATION [None]
  - PAIN IN EXTREMITY [None]
  - VIRAL INFECTION [None]
  - ATELECTASIS [None]
  - PNEUMONIA [None]
  - PULMONARY INFARCTION [None]
  - ECONOMIC PROBLEM [None]
  - HEADACHE [None]
  - DIAPHRAGMATIC HERNIA [None]
  - FEAR [None]
  - LUNG CONSOLIDATION [None]
  - ABDOMINOPLASTY [None]
